FAERS Safety Report 6986056-0 (Version None)
Quarter: 2010Q3

REPORT INFORMATION
  Report Type: 
  Country: None (occurrence: None)
  Receive Date: 20100915
  Receipt Date: 20100913
  Transmission Date: 20110219
  Serious: Yes (Other)
  Sender: FDA-Public Use
  Company Number: FR-MERCK-1009FRA00040

PATIENT
  Age: 51 Year
  Sex: Female

DRUGS (3)
  1. ISENTRESS [Suspect]
     Indication: HIV INFECTION
     Route: 048
     Dates: start: 20100104, end: 20100707
  2. DARUNAVIR [Suspect]
     Route: 048
     Dates: start: 20100104, end: 20100707
  3. RITONAVIR [Suspect]
     Route: 048
     Dates: start: 20100104, end: 20100707

REACTIONS (2)
  - DYSLIPIDAEMIA [None]
  - WEIGHT INCREASED [None]
